FAERS Safety Report 14707064 (Version 1)
Quarter: 2018Q2

REPORT INFORMATION
  Report Type: Spontaneous
  Country: US (occurrence: US)
  Receive Date: 20180403
  Receipt Date: 20180403
  Transmission Date: 20180711
  Serious: No
  Sender: FDA-Public Use
  Company Number: US-TEVA-2018-US-867193

PATIENT
  Sex: Female

DRUGS (3)
  1. GABAPENTIN. [Suspect]
     Active Substance: GABAPENTIN
     Indication: NEUROPATHY PERIPHERAL
     Dosage: 2 DOSAGE FORMS DAILY; ONE HALF TABLET FOUR TIMES DAILY
  2. GABAPENTIN. [Suspect]
     Active Substance: GABAPENTIN
     Indication: GLOSSOPHARYNGEAL NEURALGIA
     Dosage: 750 MILLIGRAM DAILY;
  3. GABAPENTIN. [Suspect]
     Active Substance: GABAPENTIN
     Indication: PARAESTHESIA
     Dosage: 1200 MILLIGRAM DAILY;

REACTIONS (1)
  - Drug ineffective for unapproved indication [Unknown]
